FAERS Safety Report 20610155 (Version 4)
Quarter: 2022Q2

REPORT INFORMATION
  Report Type: Report from Study
  Country: US (occurrence: US)
  Receive Date: 20220318
  Receipt Date: 20220426
  Transmission Date: 20220721
  Serious: Yes (Death, Hospitalization)
  Sender: FDA-Public Use
  Company Number: US-INSMED, INC.-2022-00393-US

PATIENT
  Sex: Male

DRUGS (5)
  1. ARIKAYCE [Suspect]
     Active Substance: AMIKACIN
     Indication: Mycobacterium avium complex infection
     Dosage: 590 MILLIGRAM, QD
     Route: 055
     Dates: start: 20210623, end: 20220128
  2. VANCOMYCIN [Suspect]
     Active Substance: VANCOMYCIN
     Indication: Product used for unknown indication
     Route: 065
  3. ETHAMBUTOL [Concomitant]
     Active Substance: ETHAMBUTOL HYDROCHLORIDE
     Indication: Mycobacterium avium complex infection
     Route: 065
  4. SODIUM CHLORIDE [Concomitant]
     Active Substance: SODIUM CHLORIDE
     Indication: Mycobacterial infection
     Route: 065
  5. COREG [Concomitant]
     Active Substance: CARVEDILOL
     Indication: Essential hypertension
     Route: 065

REACTIONS (14)
  - Death [Fatal]
  - Pancytopenia [Unknown]
  - Tachycardia [Unknown]
  - Febrile neutropenia [Unknown]
  - Antibiotic level above therapeutic [Unknown]
  - Blood lactate dehydrogenase increased [Unknown]
  - Blood bilirubin increased [Unknown]
  - Candida infection [Unknown]
  - Blood fibrinogen increased [Unknown]
  - Blood triglycerides increased [Unknown]
  - Blood lactic acid increased [Unknown]
  - Prothrombin time prolonged [Unknown]
  - Serum ferritin increased [Unknown]
  - Therapy interrupted [Unknown]

NARRATIVE: CASE EVENT DATE: 20220101
